FAERS Safety Report 17453061 (Version 2)
Quarter: 2020Q1

REPORT INFORMATION
  Report Type: Report from Study
  Country: KR (occurrence: KR)
  Receive Date: 20200224
  Receipt Date: 20200228
  Transmission Date: 20200409
  Serious: Yes (Death, Hospitalization)
  Sender: FDA-Public Use
  Company Number: NVSC2019KR051659

PATIENT
  Age: 65 Year
  Sex: Male
  Weight: 55.2 kg

DRUGS (1)
  1. ALPELISIB [Suspect]
     Active Substance: ALPELISIB
     Indication: HYPOPHARYNGEAL CANCER
     Dosage: 350 MG
     Route: 048
     Dates: start: 20180911, end: 20181027

REACTIONS (2)
  - Pneumonia [Recovered/Resolved]
  - Respiratory failure [Fatal]

NARRATIVE: CASE EVENT DATE: 20181106
